FAERS Safety Report 7241646-5 (Version None)
Quarter: 2011Q1

REPORT INFORMATION
  Report Type: 
  Country: None (occurrence: None)
  Receive Date: 20110124
  Receipt Date: 20110112
  Transmission Date: 20110831
  Serious: Yes (Hospitalization)
  Sender: FDA-Public Use
  Company Number: PHHY2011US02713

PATIENT
  Sex: Female

DRUGS (1)
  1. TASIGNA [Suspect]
     Indication: GASTROINTESTINAL NEOPLASM
     Dosage: 400 MG, BID
     Route: 048
     Dates: start: 20100721

REACTIONS (1)
  - CLOSTRIDIAL INFECTION [None]
